FAERS Safety Report 9312371 (Version 1)
Quarter: 2013Q2

REPORT INFORMATION
  Report Type: Spontaneous
  Country: US (occurrence: None)
  Receive Date: 20130509
  Receipt Date: 20130509
  Transmission Date: 20140414
  Serious: No
  Sender: FDA-Public Use
  Company Number: US-145400

PATIENT
  Age: 55 Year
  Sex: Male
  Weight: 97.3 kg

DRUGS (3)
  1. WINRHO SDF LIQUID [Suspect]
     Indication: AUTOIMMUNE THROMBOCYTOPENIA
     Route: 042
     Dates: start: 20130423, end: 20130423
  2. TYLENOL [Concomitant]
  3. BENADRYL [Concomitant]

REACTIONS (5)
  - Headache [None]
  - Chills [None]
  - Blood urine present [None]
  - Haemoglobin decreased [None]
  - Infusion related reaction [None]
